FAERS Safety Report 11195169 (Version 1)
Quarter: 2015Q2

REPORT INFORMATION
  Report Type: Spontaneous
  Country: US (occurrence: None)
  Receive Date: 20150615
  Receipt Date: 20150615
  Transmission Date: 20150821
  Serious: Yes (Other)
  Sender: FDA-Public Use
  Company Number: None

PATIENT
  Age: 61 Year
  Sex: Male
  Weight: 83.92 kg

DRUGS (9)
  1. CALCIUM WITH VITAMIN D [Concomitant]
     Active Substance: CALCIUM\VITAMIN D
  2. APRISO [Suspect]
     Active Substance: MESALAMINE
     Indication: INFLAMMATION
     Dosage: 4 PILLS IN MORNING
     Route: 048
     Dates: start: 20150521, end: 20150524
  3. APRISO [Suspect]
     Active Substance: MESALAMINE
     Indication: GASTROINTESTINAL DISORDER
     Dosage: 4 PILLS IN MORNING
     Route: 048
     Dates: start: 20150521, end: 20150524
  4. MAGNESIUM [Concomitant]
     Active Substance: MAGNESIUM
  5. SAW PALMETTO [Concomitant]
     Active Substance: SAW PALMETTO
  6. GLUCOSAMINE/CHONDROITIN /08437701/ [Concomitant]
     Active Substance: CHONDROITIN SULFATE (BOVINE)\GLUCOSAMINE SULFATE
  7. BIOTIN [Concomitant]
     Active Substance: BIOTIN
  8. ONE A DAY VITAMINS [Concomitant]
  9. FISH OIL [Concomitant]
     Active Substance: FISH OIL

REACTIONS (7)
  - Thirst [None]
  - Decreased appetite [None]
  - Urticaria [None]
  - Fatigue [None]
  - Somnolence [None]
  - Pruritus [None]
  - Rash [None]

NARRATIVE: CASE EVENT DATE: 20150525
